FAERS Safety Report 6886931-1 (Version None)
Quarter: 2010Q3

REPORT INFORMATION
  Report Type: 
  Country: None (occurrence: None)
  Receive Date: 20100730
  Receipt Date: 20100720
  Transmission Date: 20110219
  Serious: Yes (Other)
  Sender: FDA-Public Use
  Company Number: AU-JNJFOC-20100707231

PATIENT
  Sex: Male

DRUGS (2)
  1. TOPAMAX [Suspect]
     Indication: MIGRAINE
     Route: 065
  2. TOPAMAX [Suspect]
     Dosage: 25MG IN THE MORNING AND 50MG IN THE NIGHT
     Route: 065

REACTIONS (3)
  - CATARACT [None]
  - FEELING ABNORMAL [None]
  - TREATMENT NONCOMPLIANCE [None]
